FAERS Safety Report 15741542 (Version 4)
Quarter: 2019Q3

REPORT INFORMATION
  Report Type: Spontaneous
  Country: US (occurrence: US)
  Receive Date: 20181219
  Receipt Date: 20190830
  Transmission Date: 20191004
  Serious: Yes (Other)
  Sender: FDA-Public Use
  Company Number: US-SA-2018SA343727

PATIENT
  Age: 54 Year
  Sex: Female
  Weight: 70.8 kg

DRUGS (5)
  1. PARAPLATIN [Concomitant]
     Active Substance: CARBOPLATIN
     Indication: BREAST CANCER
  2. PERJETA [Concomitant]
     Active Substance: PERTUZUMAB
     Dosage: UNK, UNKQ
  3. TAXOTERE [Suspect]
     Active Substance: DOCETAXEL
     Dosage: 75MG/M2 OR 115MG, Q3W
     Route: 042
     Dates: start: 20180606, end: 20180606
  4. HERCEPTIN [Concomitant]
     Active Substance: TRASTUZUMAB
     Dosage: UNK, UNK
  5. TAXOTERE [Suspect]
     Active Substance: DOCETAXEL
     Indication: BREAST CANCER FEMALE
     Dosage: 75MG/M2 OR 115MG, Q3W
     Route: 042
     Dates: start: 201410, end: 201410

REACTIONS (6)
  - Impaired quality of life [Unknown]
  - Anxiety [Unknown]
  - Emotional distress [Unknown]
  - Pain [Unknown]
  - Alopecia [Not Recovered/Not Resolved]
  - Psychological trauma [Unknown]

NARRATIVE: CASE EVENT DATE: 2014
